FAERS Safety Report 8547574-7 (Version None)
Quarter: 2012Q3

REPORT INFORMATION
  Report Type: 
  Country: None (occurrence: None)
  Receive Date: 20120727
  Receipt Date: 20120404
  Transmission Date: 20120928
  Serious: No
  Sender: FDA-Public Use
  Company Number: US-ASTRAZENECA-2012SE22315

PATIENT
  Age: 82 Year
  Sex: Male
  Weight: 86.2 kg

DRUGS (11)
  1. SEROQUEL [Suspect]
     Indication: DEMENTIA ALZHEIMER'S TYPE
     Route: 048
  2. ARICEPT [Concomitant]
  3. FUROSEMIDE [Concomitant]
     Indication: FLUID RETENTION
  4. LISINOPRIL [Concomitant]
  5. POTASSIUM CHLORIDE [Concomitant]
  6. SEROQUEL [Suspect]
     Route: 048
  7. ASPIRIN [Concomitant]
  8. ZOCOR [Concomitant]
  9. FUROSEMIDE [Concomitant]
     Indication: CARDIAC FAILURE CONGESTIVE
  10. ISOSORBIDE MONONITRATE [Concomitant]
  11. TRAZODONE HCL [Concomitant]
     Indication: SLEEP DISORDER THERAPY

REACTIONS (3)
  - OFF LABEL USE [None]
  - INTENTIONAL DRUG MISUSE [None]
  - WEIGHT DECREASED [None]
